FAERS Safety Report 9881082 (Version 3)
Quarter: 2014Q2

REPORT INFORMATION
  Report Type: Report from Study
  Country: DE (occurrence: DE)
  Receive Date: 20140207
  Receipt Date: 20140417
  Transmission Date: 20141212
  Serious: Yes (Hospitalization)
  Sender: FDA-Public Use
  Company Number: DE-AMGEN-DEUCT2014008102

PATIENT
  Age: 68 Year
  Sex: Male

DRUGS (3)
  1. ETANERCEPT [Suspect]
     Indication: RHEUMATOID ARTHRITIS
     Dosage: 50 MG EVERY 7 DAYS
     Route: 065
  2. METHOTREXAT                        /00113801/ [Concomitant]
     Dosage: 15 MG, WEEKLY
  3. PREDNISOLON                        /00016201/ [Concomitant]
     Dosage: UNK

REACTIONS (1)
  - Pulmonary embolism [Recovered/Resolved]
